FAERS Safety Report 6858815-6 (Version None)
Quarter: 2010Q3

REPORT INFORMATION
  Report Type: 
  Country: None (occurrence: None)
  Receive Date: 20100719
  Receipt Date: 20080214
  Transmission Date: 20110219
  Serious: No
  Sender: FDA-Public Use
  Company Number: US-PFIZER INC-2008014604

PATIENT
  Sex: Female
  Weight: 90.7 kg

DRUGS (3)
  1. CHANTIX [Suspect]
     Indication: SMOKING CESSATION THERAPY
     Dates: start: 20080207
  2. XANAX [Concomitant]
     Indication: ANXIETY
  3. VICODIN [Concomitant]
     Indication: NECK PAIN

REACTIONS (2)
  - DRY MOUTH [None]
  - TONGUE DISCOLOURATION [None]
